FAERS Safety Report 6083854-5 (Version None)
Quarter: 2009Q1

REPORT INFORMATION
  Report Type: 
  Country: None (occurrence: None)
  Receive Date: 20090204
  Receipt Date: 20071018
  Transmission Date: 20090719
  Serious: No
  Sender: FDA-Public Use
  Company Number: 268715

PATIENT
  Age: 26 Year
  Sex: Female

DRUGS (1)
  1. NOVOLOG [Suspect]
     Indication: INSULIN-REQUIRING TYPE 2 DIABETES MELLITUS
     Dosage: 3 IU, QD, SUBCUTANEOUS
     Route: 058
     Dates: start: 20071018

REACTIONS (3)
  - BLOOD GLUCOSE INCREASED [None]
  - DIZZINESS [None]
  - INCORRECT DOSE ADMINISTERED [None]
